FAERS Safety Report 18280965 (Version 1)
Quarter: 2020Q3

REPORT INFORMATION
  Report Type: Report from Study
  Country: None (occurrence: CO)
  Receive Date: 20200917
  Receipt Date: 20200917
  Transmission Date: 20201103
  Serious: Yes (Hospitalization, Other)
  Sender: FDA-Public Use
  Company Number: CO-ABBVIE-20K-036-3445181-00

PATIENT
  Age: 56 Year
  Sex: Female
  Weight: 67 kg

DRUGS (1)
  1. HUMIRA [Suspect]
     Active Substance: ADALIMUMAB
     Indication: COLITIS ULCERATIVE
     Route: 058
     Dates: start: 20190502, end: 20200904

REACTIONS (14)
  - Weight decreased [Recovering/Resolving]
  - Blood urine present [Unknown]
  - Haematuria [Recovered/Resolved]
  - Asthenia [Recovering/Resolving]
  - Ulcer [Recovering/Resolving]
  - Diarrhoea [Recovering/Resolving]
  - Haematuria [Recovered/Resolved]
  - Gastrointestinal inflammation [Recovering/Resolving]
  - Asthenia [Recovering/Resolving]
  - Haematochezia [Recovering/Resolving]
  - Back pain [Recovering/Resolving]
  - Cystitis [Recovering/Resolving]
  - Abdominal pain [Recovering/Resolving]
  - Colitis ulcerative [Recovering/Resolving]

NARRATIVE: CASE EVENT DATE: 2020
